FAERS Safety Report 6268825-8 (Version None)
Quarter: 2009Q3

REPORT INFORMATION
  Report Type: 
  Country: None (occurrence: None)
  Receive Date: 20090715
  Receipt Date: 20090608
  Transmission Date: 20100115
  Serious: Yes (Other)
  Sender: FDA-Public Use
  Company Number: FR-BRISTOL-MYERS SQUIBB COMPANY-14701338

PATIENT
  Age: 53 Year
  Sex: Male

DRUGS (4)
  1. CETUXIMAB [Suspect]
     Indication: HEAD AND NECK CANCER
     Dosage: RECENT INF:23FEB09
     Route: 042
     Dates: start: 20090112, end: 20090223
  2. CARBOPLATIN [Suspect]
     Indication: HEAD AND NECK CANCER
     Dosage: ON 19-22JAN9:70 MG/M2(3 DAYS) ON 09FEB9:420 MG/M2 ON 02-05MAR9:70 MG/M2(3 DAYS) RECENT INF:5MAR09
     Route: 042
     Dates: start: 20090119, end: 20090122
  3. FLUOROURACIL [Suspect]
     Indication: HEAD AND NECK CANCER
     Dosage: ON 19JAN09-22JAN09:600 MG/M2(3 DAYS) ON 02MAR09-05MAR09(3 DAYS) RECENT INF:5MAR09
     Route: 042
     Dates: start: 20090119, end: 20090122
  4. RADIOTHERAPY [Suspect]
     Indication: HEAD AND NECK CANCER

REACTIONS (2)
  - DERMATITIS [None]
  - LEUKOPENIA [None]
